FAERS Safety Report 7534464-1 (Version None)
Quarter: 2011Q2

REPORT INFORMATION
  Report Type: 
  Country: None (occurrence: None)
  Receive Date: 20110608
  Receipt Date: 20080430
  Transmission Date: 20111010
  Serious: Yes (Other)
  Sender: FDA-Public Use
  Company Number: IE-GENENTECH-319930

PATIENT
  Sex: Female

DRUGS (12)
  1. DELTACORTRIL [Concomitant]
     Indication: PRODUCT USED FOR UNKNOWN INDICATION
  2. SERETIDE [Concomitant]
     Indication: PRODUCT USED FOR UNKNOWN INDICATION
     Dosage: UNK
  3. LOSEC (AUSTRALIA) [Concomitant]
     Indication: PRODUCT USED FOR UNKNOWN INDICATION
  4. CENTYL [Concomitant]
     Indication: PRODUCT USED FOR UNKNOWN INDICATION
  5. COMBIVENT [Concomitant]
     Indication: PRODUCT USED FOR UNKNOWN INDICATION
     Dosage: UNK
  6. FOSAMAX [Concomitant]
     Indication: PRODUCT USED FOR UNKNOWN INDICATION
  7. CALCICHEW [Concomitant]
     Indication: PRODUCT USED FOR UNKNOWN INDICATION
  8. THEOPHYLLINE [Concomitant]
     Indication: PRODUCT USED FOR UNKNOWN INDICATION
     Dosage: UNK
  9. CENTYL K [Concomitant]
     Indication: PRODUCT USED FOR UNKNOWN INDICATION
  10. ISTIN [Concomitant]
     Indication: PRODUCT USED FOR UNKNOWN INDICATION
  11. XOLAIR [Suspect]
     Indication: ASTHMA
     Dosage: 375 MG, Q2W
     Route: 058
     Dates: start: 20070101
  12. VENTOLIN HFA [Concomitant]
     Indication: PRODUCT USED FOR UNKNOWN INDICATION

REACTIONS (1)
  - UPPER RESPIRATORY TRACT INFECTION [None]
